FAERS Safety Report 17371057 (Version 1)
Quarter: 2020Q1

REPORT INFORMATION
  Report Type: Spontaneous
  Country: FR (occurrence: FR)
  Receive Date: 20200205
  Receipt Date: 20200205
  Transmission Date: 20200409
  Serious: Yes (Other)
  Sender: FDA-Public Use
  Company Number: FR-TEVA-2020-FR-1181429

PATIENT
  Age: 62 Year
  Sex: Male
  Weight: 87 kg

DRUGS (5)
  1. ATORVASTATINE [Concomitant]
     Active Substance: ATORVASTATIN
  2. METFORMIN [Suspect]
     Active Substance: METFORMIN HYDROCHLORIDE
     Indication: TYPE 2 DIABETES MELLITUS
     Dosage: 500 MG
     Route: 048
     Dates: start: 201909, end: 201910
  3. ENALAPRIL (MALEATE D^) [Concomitant]
     Active Substance: ENALAPRIL MALEATE
  4. KEPPRA [Concomitant]
     Active Substance: LEVETIRACETAM
  5. JANUVIA [Concomitant]
     Active Substance: SITAGLIPTIN PHOSPHATE

REACTIONS (2)
  - Urticaria [Recovered/Resolved]
  - Diarrhoea [Recovered/Resolved]

NARRATIVE: CASE EVENT DATE: 201909
